FAERS Safety Report 12746076 (Version 5)
Quarter: 2016Q4

REPORT INFORMATION
  Report Type: Report from Study
  Country: AU (occurrence: AU)
  Receive Date: 20160915
  Receipt Date: 20161107
  Transmission Date: 20170207
  Serious: Yes (Life-Threatening, Hospitalization)
  Sender: FDA-Public Use
  Company Number: AU-SA-2015SA093741

PATIENT
  Age: 53 Year
  Sex: Female

DRUGS (9)
  1. MYLANTA [Concomitant]
     Active Substance: ALUMINUM HYDROXIDE\DIMETHICONE\MAGNESIUM HYDROXIDE
     Indication: PROPHYLAXIS
     Route: 048
     Dates: start: 20150523, end: 20150524
  2. METHYLPREDNISOLONE. [Concomitant]
     Active Substance: METHYLPREDNISOLONE
     Indication: PROPHYLAXIS
     Route: 042
     Dates: start: 20150522, end: 20150526
  3. LEMTRADA [Suspect]
     Active Substance: ALEMTUZUMAB
     Indication: MULTIPLE SCLEROSIS RELAPSE
     Route: 042
     Dates: start: 20160624, end: 20160626
  4. COLOXYL WITH SENNA [Concomitant]
     Active Substance: DOCUSATE\SENNOSIDES
     Indication: PROPHYLAXIS
     Route: 048
     Dates: start: 20150525, end: 20150525
  5. ZYRTEC [Concomitant]
     Active Substance: CETIRIZINE HYDROCHLORIDE
     Indication: PROPHYLAXIS
     Route: 048
     Dates: start: 20150522
  6. PARACETAMOL [Concomitant]
     Active Substance: ACETAMINOPHEN
     Route: 048
     Dates: start: 20150322
  7. SORBITOL. [Concomitant]
     Active Substance: SORBITOL
     Indication: CONSTIPATION PROPHYLAXIS
     Route: 048
     Dates: start: 20150525, end: 20150525
  8. VALACICLOVIR [Concomitant]
     Active Substance: VALACYCLOVIR HYDROCHLORIDE
     Indication: PROPHYLAXIS
     Route: 048
     Dates: start: 20150522
  9. LEMTRADA [Suspect]
     Active Substance: ALEMTUZUMAB
     Indication: MULTIPLE SCLEROSIS RELAPSE
     Route: 042
     Dates: start: 20150522, end: 20150526

REACTIONS (13)
  - Fatigue [Unknown]
  - Influenza like illness [Recovered/Resolved]
  - Contusion [Unknown]
  - Headache [Recovered/Resolved]
  - Platelet count decreased [Unknown]
  - Dyspepsia [Recovered/Resolved]
  - Infusion site rash [Recovered/Resolved]
  - Urinary tract infection [Recovered/Resolved]
  - Myalgia [Recovering/Resolving]
  - Immune thrombocytopenic purpura [Not Recovered/Not Resolved]
  - Pain [Recovered/Resolved]
  - Discomfort [Recovered/Resolved]
  - Tooth extraction [Recovered/Resolved]

NARRATIVE: CASE EVENT DATE: 20150522
